FAERS Safety Report 19964507 (Version 1)
Quarter: 2021Q4

REPORT INFORMATION
  Report Type: Spontaneous
  Country: AT (occurrence: AT)
  Receive Date: 20211018
  Receipt Date: 20211018
  Transmission Date: 20220303
  Serious: Yes (Hospitalization)
  Sender: FDA-Public Use
  Company Number: None

PATIENT
  Age: 74 Year
  Sex: Female

DRUGS (1)
  1. ULTRAVIST [Suspect]
     Active Substance: IOPROMIDE
     Indication: Investigation
     Dosage: KM EXAMINATION - DIAGNOSTIC THUMBTACK
     Dates: start: 20210927, end: 20210927

REACTIONS (4)
  - Swelling [Not Recovered/Not Resolved]
  - Tenderness [Not Recovered/Not Resolved]
  - Erythema [Not Recovered/Not Resolved]
  - Administration site extravasation [Not Recovered/Not Resolved]

NARRATIVE: CASE EVENT DATE: 20210927
